FAERS Safety Report 5286376-4 (Version None)
Quarter: 2007Q1

REPORT INFORMATION
  Report Type: 
  Country: None (occurrence: None)
  Receive Date: 20070116
  Receipt Date: 20061023
  Transmission Date: 20070707
  Serious: No
  Sender: FDA-Public Use
  Company Number: 2006SP003787

PATIENT
  Age: 71 Year
  Sex: Female
  Weight: 63.5036 kg

DRUGS (2)
  1. LUNESTA [Suspect]
     Indication: INSOMNIA
     Dosage: 1MG; 1X; ORAL
     Route: 048
     Dates: start: 20061001, end: 20061001
  2. NADOLOL [Concomitant]

REACTIONS (1)
  - THROAT IRRITATION [None]
